FAERS Safety Report 9335553 (Version 1)
Quarter: 2013Q2

REPORT INFORMATION
  Report Type: Report from Study
  Country: DE (occurrence: DE)
  Receive Date: 20130605
  Receipt Date: 20130605
  Transmission Date: 20140414
  Serious: Yes (Hospitalization)
  Sender: FDA-Public Use
  Company Number: DE-GLAXOSMITHKLINE-B0896859A

PATIENT
  Age: 51 Year
  Sex: Female
  Weight: 58 kg

DRUGS (5)
  1. LAPATINIB [Suspect]
     Indication: BREAST CANCER
     Dosage: 750MG PER DAY
     Route: 048
     Dates: start: 20120817
  2. PACLITAXEL [Suspect]
     Indication: BREAST CANCER
     Dosage: 80MGM2 WEEKLY
     Route: 042
     Dates: start: 20120817
  3. MYOCET [Suspect]
     Indication: BREAST CANCER
     Dosage: 20MGM2 WEEKLY
     Route: 042
     Dates: start: 20120817
  4. CARBOPLATIN [Suspect]
     Indication: BREAST CANCER
     Route: 042
     Dates: start: 20120817
  5. TRASTUZUMAB [Suspect]
     Indication: BREAST CANCER
     Dosage: 8MGK EVERY 3 WEEKS
     Route: 042
     Dates: start: 20120817

REACTIONS (1)
  - General physical health deterioration [Recovered/Resolved]
